FAERS Safety Report 4632120-0 (Version None)
Quarter: 2005Q2

REPORT INFORMATION
  Report Type: 
  Country: None (occurrence: None)
  Receive Date: 20050411
  Receipt Date: 20041112
  Transmission Date: 20051028
  Serious: Yes (Hospitalization)
  Sender: FDA-Public Use
  Company Number: US-AMGEN-US099570

PATIENT
  Sex: Female
  Weight: 108.1 kg

DRUGS (11)
  1. PROCRIT [Suspect]
     Indication: RENAL FAILURE CHRONIC
     Dates: start: 20030101
  2. LEVOTHROID [Concomitant]
  3. PLAVIX [Concomitant]
  4. LASIX [Concomitant]
  5. LEXAPRO [Concomitant]
  6. NORVASC [Concomitant]
  7. HYDROCHLOROTHIAZIDE [Concomitant]
  8. INSULIN [Concomitant]
  9. GEMFIBROZIL [Concomitant]
  10. TOPROL-XL [Concomitant]
  11. WARFARIN SODIUM [Concomitant]

REACTIONS (4)
  - FALL [None]
  - HAEMOGLOBIN DECREASED [None]
  - HAEMORRHAGE [None]
  - TRAUMATIC HAEMATOMA [None]
